FAERS Safety Report 8422149-9 (Version None)
Quarter: 2012Q2

REPORT INFORMATION
  Report Type: 
  Country: None (occurrence: None)
  Receive Date: 20120608
  Receipt Date: 20120606
  Transmission Date: 20120825
  Serious: Yes (Death, Hospitalization, Other)
  Sender: FDA-Public Use
  Company Number: PHHY2011NL23541

PATIENT
  Sex: Male

DRUGS (7)
  1. ZOMETA [Suspect]
     Dosage: 4 MG/ 5 ML PER 28 DAY
     Route: 042
     Dates: start: 20110321
  2. ZOMETA [Suspect]
     Indication: PROSTATE CANCER METASTATIC
     Dosage: 4 MG/ 5 ML PER 28 DAY
     Route: 042
     Dates: start: 20090421
  3. ZOMETA [Suspect]
     Dosage: 4 MG/ 5 ML PER 28 DAY
     Route: 042
     Dates: start: 20110218
  4. BICALUTAMIDE [Concomitant]
     Indication: PROSTATIC SPECIFIC ANTIGEN INCREASED
  5. ZOMETA [Suspect]
     Dosage: 4 MG/ 5 ML PER 28 DAY
     Route: 042
     Dates: end: 20120424
  6. LUCRIEN [Concomitant]
  7. ZOLADEX [Concomitant]

REACTIONS (15)
  - WEIGHT DECREASED [None]
  - URINARY TRACT INFECTION [None]
  - BACTERIAL TEST POSITIVE [None]
  - ABASIA [None]
  - BONE PAIN [None]
  - PROSTATE CANCER [None]
  - RENAL DISORDER [None]
  - FATIGUE [None]
  - METASTASES TO BONE [None]
  - PAIN IN EXTREMITY [None]
  - RENAL IMPAIRMENT [None]
  - PROSTATIC SPECIFIC ANTIGEN INCREASED [None]
  - SEPSIS [None]
  - BACK PAIN [None]
  - ARTHRALGIA [None]
